FAERS Safety Report 7934278 (Version 2)
Quarter: 2013Q1

REPORT INFORMATION
  Report Type: Spontaneous
  Country: US (occurrence: None)
  Receive Date: 20110413
  Receipt Date: 20121220
  Transmission Date: 20140127
  Serious: Yes (Other)
  Sender: FDA-Public Use
  Company Number: JPI-P-014388

PATIENT
  Age: 51 Year
  Sex: Female
  Weight: 129.73 kg

DRUGS (5)
  1. XYREM [Suspect]
     Indication: SLEEP APNOEA SYNDROME
     Route: 048
     Dates: start: 200608
  2. METFORMIN HYDROCHLORIDE [Concomitant]
  3. FUROSEMIDE [Concomitant]
  4. POTASSIUM [Concomitant]
  5. HYDROCHLOROTHIAZIDE [Concomitant]

REACTIONS (7)
  - Fall [None]
  - Ligament rupture [None]
  - Meniscus injury [None]
  - Clostridium difficile colitis [None]
  - Ear infection [None]
  - Rectal prolapse [None]
  - Condition aggravated [None]
